FAERS Safety Report 5192626-5 (Version None)
Quarter: 2006Q4

REPORT INFORMATION
  Report Type: 
  Country: None (occurrence: None)
  Receive Date: 20061220
  Receipt Date: 20061211
  Transmission Date: 20070319
  Serious: Yes (Death, Hospitalization)
  Sender: FDA-Public Use
  Company Number: 2006077183

PATIENT
  Age: 61 Year
  Sex: Male
  Weight: 83.9154 kg

DRUGS (5)
  1. CELEBREX [Suspect]
     Indication: INTERVERTEBRAL DISC DEGENERATION
     Dosage: 200 MG (100 MG, 2 IN 1 D)
     Dates: start: 20040408, end: 20040508
  2. CELEBREX [Suspect]
     Indication: MUSCULOSKELETAL PAIN
     Dosage: 200 MG (100 MG, 2 IN 1 D)
     Dates: start: 20040408, end: 20040508
  3. ADVIL [Concomitant]
  4. ALEVE [Concomitant]
  5. ASPIRIN [Concomitant]

REACTIONS (2)
  - CARDIAC ARREST [None]
  - MYOCARDIAL INFARCTION [None]
